FAERS Safety Report 18600837 (Version 1)
Quarter: 2020Q4

REPORT INFORMATION
  Report Type: Spontaneous
  Country: US (occurrence: US)
  Receive Date: 20201210
  Receipt Date: 20201210
  Transmission Date: 20210114
  Serious: Yes (Hospitalization, Other)
  Sender: FDA-Public Use
  Company Number: US-PFIZER INC-2020486793

PATIENT
  Age: 74 Year
  Sex: Male

DRUGS (1)
  1. TAFAMIDIS [Suspect]
     Active Substance: TAFAMIDIS MEGLUMINE
     Indication: AMYLOIDOSIS
     Dosage: 61 MG
     Dates: start: 2020

REACTIONS (8)
  - Illness [Unknown]
  - Asthenia [Unknown]
  - Chest pain [Unknown]
  - Exercise tolerance decreased [Unknown]
  - Pyrexia [Unknown]
  - Endocarditis [Unknown]
  - Diarrhoea [Recovered/Resolved]
  - Off label use [Unknown]

NARRATIVE: CASE EVENT DATE: 2020
